FAERS Safety Report 20071919 (Version 1)
Quarter: 2021Q4

REPORT INFORMATION
  Report Type: Spontaneous
  Country: US (occurrence: US)
  Receive Date: 20211116
  Receipt Date: 20211116
  Transmission Date: 20220303
  Serious: No
  Sender: FDA-Public Use
  Company Number: US-INCYTE CORPORATION-2021IN010345

PATIENT

DRUGS (3)
  1. JAKAFI [Suspect]
     Active Substance: RUXOLITINIB
     Indication: Prostate cancer
     Dosage: 5 MILLIGRAM, QD
     Route: 048
     Dates: start: 202106
  2. JAKAFI [Suspect]
     Active Substance: RUXOLITINIB
     Indication: Chronic myelomonocytic leukaemia
  3. JAKAFI [Suspect]
     Active Substance: RUXOLITINIB
     Indication: Disease susceptibility

REACTIONS (5)
  - Feeling abnormal [Unknown]
  - Chest pain [Unknown]
  - Off label use [Unknown]
  - Oedema [Unknown]
  - Dyspnoea [Unknown]
